FAERS Safety Report 5787732-8 (Version None)
Quarter: 2008Q2

REPORT INFORMATION
  Report Type: 
  Country: None (occurrence: None)
  Receive Date: 20080624
  Receipt Date: 20080624
  Transmission Date: 20081010
  Serious: Yes (Hospitalization)
  Sender: FDA-Public Use
  Company Number: None

PATIENT
  Sex: Female
  Weight: 68.9 kg

DRUGS (2)
  1. CARBOPLATIN [Suspect]
     Dosage: 452 MG
  2. TAXOL [Suspect]
     Dosage: 236 MG

REACTIONS (2)
  - ASTHENIA [None]
  - FALL [None]
